FAERS Safety Report 11804918 (Version 1)
Quarter: 2015Q4

REPORT INFORMATION
  Report Type: Spontaneous
  Country: US (occurrence: US)
  Receive Date: 20151205
  Receipt Date: 20151205
  Transmission Date: 20160305
  Serious: No
  Sender: FDA-Public Use
  Company Number: US-BAUSCH-BL-2014-008807

PATIENT
  Age: 18 Year
  Sex: Male

DRUGS (2)
  1. XENAZINE [Suspect]
     Active Substance: TETRABENAZINE
     Indication: PRODUCT USED FOR UNKNOWN INDICATION
     Dates: start: 20141021
  2. XENAZINE [Suspect]
     Active Substance: TETRABENAZINE
     Route: 048
     Dates: start: 20141021

REACTIONS (5)
  - Hypertonia [Unknown]
  - Tremor [Unknown]
  - Muscle rigidity [Unknown]
  - Restless legs syndrome [Unknown]
  - Hyperreflexia [Unknown]

NARRATIVE: CASE EVENT DATE: 20141108
